FAERS Safety Report 9768181 (Version 1)
Quarter: 2013Q4

REPORT INFORMATION
  Report Type: Report from Study
  Country: EC (occurrence: EC)
  Receive Date: 20131217
  Receipt Date: 20131217
  Transmission Date: 20140711
  Serious: Yes (Death, Hospitalization, Other)
  Sender: FDA-Public Use
  Company Number: PHHY2013EC147409

PATIENT
  Age: 83 Year
  Sex: Male

DRUGS (1)
  1. DIOVAN HCT [Suspect]
     Dosage: 1 DF (VALS 160MG/HCTZ 12.5MG) QD
     Route: 048
     Dates: start: 2007

REACTIONS (6)
  - Cardiac arrest [Fatal]
  - Respiratory arrest [Fatal]
  - Mood altered [Unknown]
  - Asthenia [Unknown]
  - Pneumonia [Not Recovered/Not Resolved]
  - Dyspnoea [Not Recovered/Not Resolved]
